FAERS Safety Report 7415284-5 (Version None)
Quarter: 2011Q2

REPORT INFORMATION
  Report Type: 
  Country: None (occurrence: None)
  Receive Date: 20110414
  Receipt Date: 20110331
  Transmission Date: 20111010
  Serious: Yes (Hospitalization)
  Sender: FDA-Public Use
  Company Number: CA-JNJFOC-20110106684

PATIENT
  Sex: Female
  Weight: 54.5 kg

DRUGS (4)
  1. REMICADE [Suspect]
     Route: 042
  2. REMICADE [Suspect]
     Indication: CROHN'S DISEASE
     Route: 042
  3. REMICADE [Suspect]
     Dosage: WEEK 6 LOADING DOSE
     Route: 042
  4. ASACOL [Concomitant]
     Route: 065

REACTIONS (6)
  - CONSTIPATION [None]
  - BLOOD POTASSIUM DECREASED [None]
  - CROHN'S DISEASE [None]
  - CYSTITIS [None]
  - ABDOMINAL PAIN [None]
  - INTESTINAL OBSTRUCTION [None]
